FAERS Safety Report 24089323 (Version 1)
Quarter: 2024Q3

REPORT INFORMATION
  Report Type: Spontaneous
  Country: US (occurrence: US)
  Receive Date: 20240715
  Receipt Date: 20240715
  Transmission Date: 20241016
  Serious: Yes (Other)
  Sender: AMNEAL
  Company Number: US-AMNEAL PHARMACEUTICALS-2023-AMRX-02924

PATIENT
  Age: 40 Year

DRUGS (2)
  1. DIVALPROEX SODIUM [Suspect]
     Active Substance: DIVALPROEX SODIUM
     Indication: Depression
     Dosage: 250 MG TABLET
     Route: 048
     Dates: start: 202204
  2. DIVALPROEX SODIUM [Suspect]
     Active Substance: DIVALPROEX SODIUM
     Indication: Suicidal ideation

REACTIONS (12)
  - Suicidal ideation [Unknown]
  - Seizure [Unknown]
  - Paraesthesia [Unknown]
  - Dysphonia [Unknown]
  - Musculoskeletal stiffness [Unknown]
  - Blood testosterone decreased [Unknown]
  - Affective disorder [Unknown]
  - Syncope [Unknown]
  - Fall [Unknown]
  - Penile size reduced [Unknown]
  - Testicular atrophy [Unknown]
  - Dizziness [Unknown]

NARRATIVE: CASE EVENT DATE: 20220401
